FAERS Safety Report 8615090-X (Version None)
Quarter: 2012Q3

REPORT INFORMATION
  Report Type: 
  Country: None (occurrence: None)
  Receive Date: 20120823
  Receipt Date: 20120817
  Transmission Date: 20120928
  Serious: Yes (Hospitalization)
  Sender: FDA-Public Use
  Company Number: PHHO2009AU08807

PATIENT
  Sex: Male
  Weight: 83.4 kg

DRUGS (14)
  1. CALCIUM [Concomitant]
  2. FUROSEMIDE [Concomitant]
     Indication: HYPERTENSION
     Dosage: 40 MG, QD
     Route: 048
  3. IMATINIB MESYLATE [Suspect]
     Indication: CHRONIC MYELOID LEUKAEMIA
     Dosage: 400 MG, UNK
     Route: 048
     Dates: start: 20090622
  4. PERINDOPRIL ERBUMINE [Concomitant]
     Indication: HYPERTENSION
  5. LERCANIDIPINE [Concomitant]
  6. INDAPAMIDE W/PERINDOPRIL [Concomitant]
     Indication: HYPERTENSION
  7. PLAVIX [Concomitant]
  8. IVABRADINE [Concomitant]
     Indication: ANGINA PECTORIS
  9. ARGININE [Concomitant]
     Indication: ANGINA PECTORIS
  10. ISOSORBIDE MONONITRATE [Concomitant]
     Indication: PROPHYLAXIS
     Dosage: 60 MG, Q12H
     Route: 048
  11. VITAMIN D [Concomitant]
  12. MOTILIUM [Concomitant]
  13. NICORANDIL [Concomitant]
     Indication: ANGINA PECTORIS
  14. ALLOPURINOL [Concomitant]

REACTIONS (28)
  - CREPITATIONS [None]
  - MYOCARDIAL ISCHAEMIA [None]
  - PLEURAL EFFUSION [None]
  - CORONARY ARTERY STENOSIS [None]
  - ABDOMINAL TENDERNESS [None]
  - LUNG CONSOLIDATION [None]
  - COUGH [None]
  - HYPERHIDROSIS [None]
  - PALPITATIONS [None]
  - GASTRITIS [None]
  - GASTRIC ULCER [None]
  - DIZZINESS [None]
  - CORONARY ARTERY OCCLUSION [None]
  - ACUTE PULMONARY OEDEMA [None]
  - CONCOMITANT DISEASE PROGRESSION [None]
  - ABDOMINAL DISCOMFORT [None]
  - CORONARY ARTERY DISEASE [None]
  - BREATH SOUNDS ABNORMAL [None]
  - ACUTE MYOCARDIAL INFARCTION [None]
  - CHEST DISCOMFORT [None]
  - HEADACHE [None]
  - DYSPNOEA [None]
  - MALAISE [None]
  - ANAEMIA [None]
  - RENAL IMPAIRMENT [None]
  - ANGINA PECTORIS [None]
  - TROPONIN INCREASED [None]
  - HAEMATOCHEZIA [None]
